FAERS Safety Report 13260805 (Version 1)
Quarter: 2017Q1

REPORT INFORMATION
  Report Type: Report from Study
  Country: AU (occurrence: AU)
  Receive Date: 20170222
  Receipt Date: 20170222
  Transmission Date: 20170428
  Serious: Yes (Other)
  Sender: FDA-Public Use
  Company Number: AU-BIOGEN-2014BI130739

PATIENT
  Age: 33 Year
  Sex: Male

DRUGS (5)
  1. AVONEX [Suspect]
     Active Substance: INTERFERON BETA-1A
     Indication: MULTIPLE SCLEROSIS
     Route: 030
     Dates: start: 20141202
  2. AVONEX [Suspect]
     Active Substance: INTERFERON BETA-1A
     Route: 030
     Dates: end: 20161223
  3. AVONEX [Suspect]
     Active Substance: INTERFERON BETA-1A
     Route: 030
     Dates: start: 20141215
  4. VITAMIN D [Concomitant]
     Active Substance: CHOLECALCIFEROL
     Indication: PRODUCT USED FOR UNKNOWN INDICATION
     Route: 065
     Dates: start: 2016
  5. AVONEX [Suspect]
     Active Substance: INTERFERON BETA-1A
     Route: 030
     Dates: start: 20141208

REACTIONS (13)
  - Fatigue [Recovered/Resolved]
  - Oropharyngeal pain [Recovered/Resolved]
  - Deep vein thrombosis [Unknown]
  - Multiple sclerosis [Not Recovered/Not Resolved]
  - Speech disorder [Not Recovered/Not Resolved]
  - Muscle spasms [Recovered/Resolved]
  - Headache [Not Recovered/Not Resolved]
  - Eye pain [Unknown]
  - Arthralgia [Recovered/Resolved]
  - Pain [Unknown]
  - Underdose [Recovered/Resolved]
  - Myalgia [Recovered/Resolved]
  - Injection site pain [Unknown]

NARRATIVE: CASE EVENT DATE: 20141202
